FAERS Safety Report 7314805-0 (Version None)
Quarter: 2011Q1

REPORT INFORMATION
  Report Type: 
  Country: None (occurrence: None)
  Receive Date: 20110225
  Receipt Date: 20110124
  Transmission Date: 20110831
  Serious: No
  Sender: FDA-Public Use
  Company Number: US-MYLANLABS-2010S1022966

PATIENT
  Age: 23 Year
  Sex: Female

DRUGS (2)
  1. AMNESTEEM [Suspect]
     Indication: ACNE CYSTIC
     Route: 048
     Dates: start: 20101109, end: 20101201
  2. CONTRACEPTIVE [Concomitant]
     Indication: CONTRACEPTION

REACTIONS (2)
  - TRICHORRHEXIS [None]
  - DRY SKIN [None]
